FAERS Safety Report 8849024 (Version 2)
Quarter: 2012Q4

REPORT INFORMATION
  Report Type: 
  Country: US (occurrence: US)
  Receive Date: 20121019
  Receipt Date: 20121219
  Transmission Date: 20130627
  Serious: Yes (Hospitalization, Other)
  Sender: FDA-Public Use
  Company Number: US-ELI_LILLY_AND_COMPANY-US201210002986

PATIENT
  Age: 69 Year
  Sex: Female

DRUGS (9)
  1. CYMBALTA [Suspect]
     Indication: DEPRESSION
     Dosage: 60 mg, qd
  2. CYMBALTA [Suspect]
     Dosage: 90 mg, qd
  3. CYMBALTA [Suspect]
     Dosage: 120 mg, qd
  4. LISINOPRIL [Concomitant]
  5. OMEPRAZOLE [Concomitant]
  6. ZANAFLEX [Concomitant]
  7. AMBIEN [Concomitant]
  8. HYDROCODONE W/ACETAMINOPHEN [Concomitant]
  9. GABAPENTIN [Concomitant]

REACTIONS (11)
  - Myocardial infarction [Unknown]
  - Surgery [Unknown]
  - Knee arthroplasty [Unknown]
  - Intestinal ischaemia [Unknown]
  - Gastrointestinal haemorrhage [Unknown]
  - Dehydration [Unknown]
  - Diarrhoea [Unknown]
  - Crying [Not Recovered/Not Resolved]
  - Dizziness [Recovered/Resolved]
  - Crying [Unknown]
  - Pain [Unknown]
